FAERS Safety Report 5502904-5 (Version None)
Quarter: 2007Q4

REPORT INFORMATION
  Report Type: 
  Country: None (occurrence: None)
  Receive Date: 20071029
  Receipt Date: 20071029
  Transmission Date: 20080405
  Serious: Yes (Death, Life-Threatening, Hospitalization)
  Sender: FDA-Public Use
  Company Number: None

PATIENT
  Age: 85 Year
  Sex: Female
  Weight: 43.0917 kg

DRUGS (1)
  1. VANCOMYCIN [Suspect]
     Indication: RESPIRATORY DISORDER
     Dates: start: 20070920, end: 20070920

REACTIONS (8)
  - DYSPHAGIA [None]
  - DYSPNOEA [None]
  - EATING DISORDER [None]
  - FLUSHING [None]
  - INCOHERENT [None]
  - OEDEMA [None]
  - OXYGEN SATURATION DECREASED [None]
  - SCREAMING [None]
